FAERS Safety Report 8996908 (Version 1)
Quarter: 2012Q4

REPORT INFORMATION
  Report Type: Spontaneous
  Country: NL (occurrence: None)
  Receive Date: 20121221
  Receipt Date: 20121221
  Transmission Date: 20130627
  Serious: Yes (Other)
  Sender: FDA-Public Use
  Company Number: COL_12866_2012

PATIENT
  Sex: Female
  Weight: 34 kg

DRUGS (1)
  1. COLGATE JUNIOR BUBBLE FRUIT [Suspect]
     Indication: DENTAL CARIES
     Dosage: (Normal dose for brushing/BID/ Oral)
     Dates: start: 201211, end: 20121216

REACTIONS (11)
  - Suffocation feeling [None]
  - Choking [None]
  - Panic attack [None]
  - Shock [None]
  - Pallor [None]
  - Eye movement disorder [None]
  - Tracheal inflammation [None]
  - Chemical burn of respiratory tract [None]
  - Dyspnoea [None]
  - Exercise tolerance decreased [None]
  - Accidental exposure to product [None]
